FAERS Safety Report 7034672-2 (Version None)
Quarter: 2010Q4

REPORT INFORMATION
  Report Type: 
  Country: None (occurrence: None)
  Receive Date: 20101008
  Receipt Date: 20100930
  Transmission Date: 20110411
  Serious: Yes (Death)
  Sender: FDA-Public Use
  Company Number: FR-ABBOTT-09P-056-0609412-00

PATIENT
  Sex: Male

DRUGS (11)
  1. ENANTONE LP 30 MG PREP INJ [Suspect]
     Indication: PROSTATE CANCER
     Route: 058
     Dates: start: 20090207
  2. NOVONORM [Suspect]
     Indication: TYPE 2 DIABETES MELLITUS
     Route: 048
  3. COMTAN [Suspect]
     Indication: PARKINSON'S DISEASE
     Route: 048
  4. MODOPAR [Suspect]
     Indication: PARKINSON'S DISEASE
     Route: 048
  5. COZAAR [Suspect]
     Indication: PRODUCT USED FOR UNKNOWN INDICATION
     Route: 048
  6. METFORMIN [Suspect]
     Indication: TYPE 2 DIABETES MELLITUS
     Route: 048
  7. TAHOR [Suspect]
     Indication: HYPERCHOLESTEROLAEMIA
     Route: 048
  8. EQUANIL [Suspect]
     Indication: PRODUCT USED FOR UNKNOWN INDICATION
     Route: 048
  9. ATHYMIL [Suspect]
     Indication: PRODUCT USED FOR UNKNOWN INDICATION
     Route: 048
  10. LEXOMIL [Suspect]
     Indication: PRODUCT USED FOR UNKNOWN INDICATION
  11. FORLAX [Suspect]
     Indication: PRODUCT USED FOR UNKNOWN INDICATION
     Route: 048

REACTIONS (2)
  - DEATH [None]
  - PULMONARY EMBOLISM [None]
